FAERS Safety Report 5639430-9 (Version None)
Quarter: 2008Q1

REPORT INFORMATION
  Report Type: 
  Country: None (occurrence: None)
  Receive Date: 20080226
  Receipt Date: 20080214
  Transmission Date: 20080703
  Serious: Yes (Other)
  Sender: FDA-Public Use
  Company Number: US-PFIZER INC-2008014651

PATIENT

DRUGS (1)
  1. SUTENT [Suspect]

REACTIONS (2)
  - ADVERSE DRUG REACTION [None]
  - CARDIAC OPERATION [None]
